FAERS Safety Report 8051084-3 (Version None)
Quarter: 2012Q1

REPORT INFORMATION
  Report Type: 
  Country: None (occurrence: None)
  Receive Date: 20120117
  Receipt Date: 20120111
  Transmission Date: 20120608
  Serious: Yes (Hospitalization, Other)
  Sender: FDA-Public Use
  Company Number: PHEH2009US03937

PATIENT
  Sex: Female

DRUGS (80)
  1. FASLODEX [Concomitant]
  2. LEVEMIR [Concomitant]
  3. RESTORIL [Concomitant]
  4. CIPROFLOXACIN [Concomitant]
  5. MELOXICAM [Concomitant]
  6. CINNAMON [Concomitant]
     Dosage: 500 BID
  7. GLUCOPHAGE [Concomitant]
     Dosage: 1000 BID
  8. CYMBALTA [Concomitant]
     Dosage: 60 MG BID
  9. ADENOSINE [Concomitant]
  10. AVANDIA [Concomitant]
  11. OXYCODONE HCL [Concomitant]
     Dosage: 40 MG, BID
  12. PERCOCET [Concomitant]
  13. ACCUPRIL [Concomitant]
     Dosage: 20 MG, QD
  14. TUSSIN [Concomitant]
     Dosage: UNK
  15. AMARYL [Concomitant]
     Dosage: 14 MG, BID
  16. ACIDOPHILUS ^ZYMA^ [Concomitant]
     Route: 048
  17. ZOMETA [Suspect]
     Indication: METASTATIC NEOPLASM
     Dosage: 4 MG, MONTHLY
     Dates: start: 20061001
  18. ZYRTEC [Concomitant]
  19. LASIX [Concomitant]
     Dosage: 20 OD
  20. DARVOCET-N 50 [Concomitant]
  21. COLACE [Concomitant]
     Dosage: 100 MG, BID
  22. MEGACE [Concomitant]
     Dosage: 40 MG, UNK
  23. HORMONES NOS [Concomitant]
  24. NOVOLOG [Concomitant]
  25. MEGESTROL ACETATE [Concomitant]
  26. CHLORZOXAZONE [Concomitant]
  27. METOLAZONE [Concomitant]
     Dosage: 2.5 QOD
  28. DEMADEX [Concomitant]
     Dosage: 20 MG
  29. ASPIRIN [Concomitant]
  30. COVERA-HS [Concomitant]
  31. PARAFON FORTE [Concomitant]
  32. LEVAQUIN [Concomitant]
  33. LOVENOX [Concomitant]
     Dosage: 40 MG, QD
  34. MOBIC [Concomitant]
     Dosage: 7.5 MG, BID
  35. ZOMETA [Suspect]
     Indication: BREAST CANCER METASTATIC
  36. CARDIZEM [Concomitant]
  37. PRANDIN [Concomitant]
     Dosage: 2 MG, TID
  38. DIOVAN [Concomitant]
  39. AROMASIN [Concomitant]
     Dosage: 25 MG, UNK
  40. ALLEGRA [Concomitant]
     Dosage: 180 MG, UNK
  41. FENTANYL [Concomitant]
     Dosage: 100 MCG
  42. ZANTAC [Concomitant]
  43. CARDIOLITE [Concomitant]
  44. VITAMIN C [Concomitant]
  45. ANCEF [Concomitant]
  46. MORPHINE [Concomitant]
  47. DILAUDID [Concomitant]
  48. VERSED [Concomitant]
     Dosage: 4 MG, UNK
  49. LEXAPRO [Concomitant]
  50. MUCINEX [Concomitant]
  51. AMBIEN [Concomitant]
     Dosage: 12.5  I QHS
  52. NOLVADEX [Concomitant]
  53. OXYCONTIN [Concomitant]
  54. DEMEROL [Concomitant]
     Dosage: 62.5 MG, UNK
  55. AMPICILLIN [Concomitant]
     Dosage: 100 MG, UNK
     Route: 042
  56. DEXTROMETHORPHAN HYDROBROMIDE [Concomitant]
  57. GABAPENTIN [Concomitant]
     Dosage: 100 MG, UNK
  58. INSULIN [Concomitant]
  59. ACCUPRIL [Concomitant]
  60. FLUCONAZOLE [Concomitant]
  61. LORTAB [Concomitant]
  62. CHEMOTHERAPEUTICS [Concomitant]
     Dates: start: 20080512
  63. CYMBALTA [Concomitant]
     Dosage: 30 Q.A.M.
  64. KEFLEX [Concomitant]
  65. ARMODAFINIL [Concomitant]
     Dosage: 150 MG, UNK
  66. LANTUS [Concomitant]
     Dosage: 40 MG, UNK
  67. LACTULOSE [Concomitant]
  68. CETIRIZINE [Concomitant]
     Indication: HYPERSENSITIVITY
     Dosage: 10 MG, UNK
  69. NAPROXEN (ALEVE) [Concomitant]
     Indication: DIABETES MELLITUS
     Dosage: 500 MG, UNK
  70. LIQUIBID [Concomitant]
     Dosage: 600 MG, BID
  71. GENTAMICIN [Concomitant]
     Dosage: 80 MG, UNK
     Route: 042
  72. FOSAMAX [Suspect]
  73. METFORMIN HCL [Concomitant]
  74. KLOR-CON [Concomitant]
  75. MAGNESIUM OXIDE [Concomitant]
     Dosage: 400 MG 1 TAB ONCE DAILY
  76. NYSTATIN [Concomitant]
     Dosage: 5 ML FOUR TIMES DAILY
  77. NORCO [Concomitant]
  78. PROAIR HFA [Concomitant]
  79. METFORMIN HYDROCHLORIDE [Concomitant]
     Dosage: 1000 MG, BID
  80. CRESTOR [Concomitant]
     Dosage: 10 MG, UNK

REACTIONS (100)
  - INJURY [None]
  - DISABILITY [None]
  - ANHEDONIA [None]
  - OSTEOPENIA [None]
  - ABDOMINAL PAIN [None]
  - DYSPNOEA EXERTIONAL [None]
  - GINGIVAL PAIN [None]
  - INSOMNIA [None]
  - TENDONITIS [None]
  - TRANSIENT ISCHAEMIC ATTACK [None]
  - INTERVERTEBRAL DISC DEGENERATION [None]
  - NODULE [None]
  - DEVICE MALFUNCTION [None]
  - TOOTH INFECTION [None]
  - OEDEMA [None]
  - NECK PAIN [None]
  - PAIN IN EXTREMITY [None]
  - RASH [None]
  - HEPATIC STEATOSIS [None]
  - FLUID OVERLOAD [None]
  - HYPERMETABOLISM [None]
  - FACET JOINT SYNDROME [None]
  - EXOSTOSIS [None]
  - NEOPLASM MALIGNANT [None]
  - INTERVERTEBRAL DISC SPACE NARROWING [None]
  - LYMPHOMA [None]
  - OSTEONECROSIS OF JAW [None]
  - PAIN [None]
  - BRONCHITIS [None]
  - METASTASES TO BONE [None]
  - OSTEITIS [None]
  - SCARLET FEVER [None]
  - HAEMORRHOIDS [None]
  - OSTEOPOROSIS [None]
  - GASTROOESOPHAGEAL REFLUX DISEASE [None]
  - FALL [None]
  - ACETABULUM FRACTURE [None]
  - CARDIAC FAILURE CONGESTIVE [None]
  - LIGAMENT INJURY [None]
  - TENOSYNOVITIS STENOSANS [None]
  - GAIT DISTURBANCE [None]
  - BONE LESION [None]
  - PNEUMONIA [None]
  - SKIN DISORDER [None]
  - CARDIOMEGALY [None]
  - ARTERIOSCLEROSIS CORONARY ARTERY [None]
  - NECK INJURY [None]
  - CHRONIC OBSTRUCTIVE PULMONARY DISEASE [None]
  - CANDIDIASIS [None]
  - RENAL FAILURE CHRONIC [None]
  - DEEP VEIN THROMBOSIS [None]
  - ARRHYTHMIA [None]
  - TOOTHACHE [None]
  - NEPHROLITHIASIS [None]
  - MUMPS [None]
  - KIDNEY INFECTION [None]
  - BACK PAIN [None]
  - CHOLELITHIASIS [None]
  - RECTAL POLYP [None]
  - GOITRE [None]
  - OEDEMA PERIPHERAL [None]
  - LYMPHOEDEMA [None]
  - GINGIVAL ERYTHEMA [None]
  - CARPAL TUNNEL SYNDROME [None]
  - OSTEOARTHRITIS [None]
  - JOINT SWELLING [None]
  - SLEEP APNOEA SYNDROME [None]
  - OBESITY [None]
  - DEPRESSION [None]
  - VISION BLURRED [None]
  - ANXIETY [None]
  - SEASONAL ALLERGY [None]
  - VITAMIN D DECREASED [None]
  - HYPOKALAEMIA [None]
  - SCOLIOSIS [None]
  - POLLAKIURIA [None]
  - PAIN IN JAW [None]
  - CARDIAC MURMUR [None]
  - RUBELLA [None]
  - ASTHMA [None]
  - GROIN PAIN [None]
  - ORAL INFECTION [None]
  - PERIPHERAL SENSORY NEUROPATHY [None]
  - DYSPEPSIA [None]
  - CONTUSION [None]
  - ATRIAL FIBRILLATION [None]
  - HYPERLIPIDAEMIA [None]
  - ARTHRITIS [None]
  - URTICARIA [None]
  - CHRONIC SINUSITIS [None]
  - CONSTIPATION [None]
  - SWELLING FACE [None]
  - DIVERTICULUM INTESTINAL [None]
  - HEAD INJURY [None]
  - SPINAL OSTEOARTHRITIS [None]
  - HAEMATOMA [None]
  - NEOPLASM PROGRESSION [None]
  - MUSCLE SPASMS [None]
  - MITRAL VALVE PROLAPSE [None]
  - HEART RATE INCREASED [None]
